FAERS Safety Report 21885993 (Version 1)
Quarter: 2023Q1

REPORT INFORMATION
  Report Type: Spontaneous
  Country: CN (occurrence: None)
  Receive Date: 20230119
  Receipt Date: 20230119
  Transmission Date: 20230417
  Serious: Yes (Other)
  Sender: FDA-Public Use
  Company Number: 2023A009449

PATIENT
  Age: 17628 Day
  Sex: Female
  Weight: 64 kg

DRUGS (1)
  1. LYNPARZA [Suspect]
     Active Substance: OLAPARIB
     Indication: Symptomatic treatment
     Dosage: 150 MG IN THE MORNING AND 300 MG IN THE EVENING
     Route: 048
     Dates: start: 20220809, end: 20221107

REACTIONS (1)
  - Myelosuppression [Recovering/Resolving]

NARRATIVE: CASE EVENT DATE: 20221025
